FAERS Safety Report 7334701-2 (Version None)
Quarter: 2011Q1

REPORT INFORMATION
  Report Type: 
  Country: None (occurrence: None)
  Receive Date: 20110307
  Receipt Date: 20110210
  Transmission Date: 20110831
  Serious: Yes (Death, Other)
  Sender: FDA-Public Use
  Company Number: US-BAYER-200934528NA

PATIENT
  Sex: Female
  Weight: 57 kg

DRUGS (28)
  1. EPHEDRINE [Concomitant]
     Dosage: 20 MG, UNK
     Route: 042
     Dates: start: 20040205, end: 20040205
  2. NEO-SYNEPHRINOL [Concomitant]
     Dosage: 100 ?G, UNK
     Route: 042
     Dates: start: 20040205, end: 20040205
  3. CALCIUM CHLORIDE [Concomitant]
     Dosage: 3 G, CPB
  4. TRASYLOL [Suspect]
     Indication: CORONARY ARTERY BYPASS
     Dosage: 1 ML, ONCE
     Dates: start: 20040205
  5. TRASYLOL [Suspect]
     Indication: MITRAL VALVE REPLACEMENT
     Dosage: 200 ML LOADING DOSE
     Dates: start: 20040205
  6. TOPROL-XL [Concomitant]
     Dosage: 50 MG, UNK
     Route: 048
  7. DIGOXIN [Concomitant]
     Dosage: 250 ?G, UNK
     Route: 048
  8. PROTAMINE SULFATE [Concomitant]
     Dosage: 250 MG, UNK
     Route: 042
     Dates: start: 20040205, end: 20040205
  9. VALIUM [Concomitant]
     Indication: ANXIETY
     Dosage: 10 MG, ONCE
     Route: 048
     Dates: start: 20040202, end: 20040202
  10. VALIUM [Concomitant]
     Dosage: 10 MG, UNK
     Route: 048
     Dates: start: 20040204, end: 20040204
  11. DOPAMINE [Concomitant]
     Dosage: 3 MCG/KG/MIN
     Route: 042
     Dates: start: 20040205, end: 20040205
  12. HEPARIN [Concomitant]
     Dosage: 2500 UNITS BOLUS
     Route: 042
     Dates: start: 20040203, end: 20040203
  13. HEPARIN [Concomitant]
     Dosage: 1000 UNITS/HR
     Route: 042
     Dates: start: 20040203
  14. FENTANYL [Concomitant]
     Dosage: 20 CC
     Route: 042
     Dates: start: 20040205, end: 20040205
  15. ALBUTEROL [Concomitant]
     Dosage: 2 PUFF(S), UNK
     Route: 055
  16. HEPARIN [Concomitant]
     Dosage: 35000 U, UNK
     Route: 042
     Dates: start: 20040205, end: 20040205
  17. PAVULON [Concomitant]
     Dosage: 20 MG, UNK
     Route: 042
     Dates: start: 20040205, end: 20040205
  18. SOLU-MEDROL [Concomitant]
     Dosage: 500 MG, UNK
     Route: 042
     Dates: start: 20040205, end: 20040205
  19. INSULIN [INSULIN] [Concomitant]
     Dosage: 10 U, CPB
     Dates: start: 20040205, end: 20040205
  20. ZINACEF [Concomitant]
     Dosage: 1.5 G, UNK
     Route: 042
     Dates: start: 20040205, end: 20040205
  21. SODIUM BICARBONATE [Concomitant]
     Dosage: 75 MEQ, CPB
     Dates: start: 20040205, end: 20040205
  22. MANNITOL [Concomitant]
     Dosage: 37.5 G, CPB
     Dates: start: 20040205, end: 20040205
  23. XANAX [Concomitant]
     Dosage: 0.25 MG, UNK
     Route: 048
  24. COUMADIN [Concomitant]
     Indication: ATRIAL FIBRILLATION
     Dosage: 2 MG, UNK
     Route: 048
     Dates: start: 20031212
  25. ATIVAN [Concomitant]
     Dosage: 4 MG, UNK
     Route: 042
     Dates: start: 20040205, end: 20040205
  26. HEPARIN [Concomitant]
     Dosage: 50 MG CPB
     Dates: start: 20040205, end: 20040205
  27. ASPIRIN [Concomitant]
     Dosage: 325 MG, UNK
     Route: 048
     Dates: start: 20040203
  28. VANCOMYCIN [Concomitant]
     Dosage: 1 G, UNK
     Route: 042
     Dates: start: 20040205, end: 20040205

REACTIONS (12)
  - UNEVALUABLE EVENT [None]
  - STRESS [None]
  - ANXIETY [None]
  - RENAL INJURY [None]
  - RENAL IMPAIRMENT [None]
  - DEATH [None]
  - FEAR [None]
  - RENAL FAILURE [None]
  - MULTI-ORGAN FAILURE [None]
  - EMOTIONAL DISTRESS [None]
  - PAIN [None]
  - INJURY [None]
